FAERS Safety Report 5754345-3 (Version None)
Quarter: 2008Q2

REPORT INFORMATION
  Report Type: 
  Country: None (occurrence: None)
  Receive Date: 20080530
  Receipt Date: 20080520
  Transmission Date: 20081010
  Serious: Yes (Hospitalization)
  Sender: FDA-Public Use
  Company Number: DE-PFIZER INC-2008025828

PATIENT
  Sex: Male
  Weight: 84 kg

DRUGS (9)
  1. LYRICA [Suspect]
     Indication: DIABETIC NEUROPATHY
     Route: 048
     Dates: start: 20080204, end: 20080213
  2. LYRICA [Suspect]
     Indication: NEURALGIA
  3. INSULIN [Concomitant]
  4. DICLO [Concomitant]
  5. OMEP [Concomitant]
  6. AMLODIPINE [Concomitant]
  7. ALLOPURINOL [Concomitant]
  8. MICARDIS [Concomitant]
  9. DOXAZOSIN MESYLATE [Concomitant]

REACTIONS (3)
  - ABASIA [None]
  - DEPRESSION [None]
  - MYOCLONUS [None]
